FAERS Safety Report 7605979-2 (Version None)
Quarter: 2011Q3

REPORT INFORMATION
  Report Type: 
  Country: None (occurrence: None)
  Receive Date: 20110713
  Receipt Date: 20110709
  Transmission Date: 20111222
  Serious: Yes (Death)
  Sender: FDA-Public Use
  Company Number: PHHY2011AR23061

PATIENT
  Sex: Female

DRUGS (1)
  1. DIOVAN HCT [Suspect]
     Indication: HYPERTENSION
     Dosage: 1 DF (160 MG OF VALSARTAN/12.5 MG OF HYDROCHLOROTHIAZIDE), QD
     Dates: start: 20100901

REACTIONS (2)
  - CONCOMITANT DISEASE PROGRESSION [None]
  - BREAST CANCER [None]
